FAERS Safety Report 9475644 (Version 2)
Quarter: 2013Q4

REPORT INFORMATION
  Report Type: Report from Study
  Country: US (occurrence: US)
  Receive Date: 20130826
  Receipt Date: 20131009
  Transmission Date: 20140711
  Serious: Yes (Other)
  Sender: FDA-Public Use
  Company Number: PHEH2013US017871

PATIENT
  Age: 55 Year
  Sex: Female
  Weight: 58.5 kg

DRUGS (8)
  1. EXTAVIA [Suspect]
     Indication: MULTIPLE SCLEROSIS
     Dosage: 0.3 MG, QOD
     Route: 058
     Dates: start: 1997, end: 201308
  2. ADVIL//IBUPROFEN [Concomitant]
     Dosage: 1 DF, PRN
     Route: 048
  3. AUBAGIO [Concomitant]
     Dosage: UNK UKN, QD
  4. EFEXOR XR [Concomitant]
     Dosage: 2 DF, QD
     Route: 048
  5. LANTUS [Concomitant]
     Dosage: UNK UKN, UNK
     Route: 058
  6. NOVOLOG [Concomitant]
     Dosage: UNK UKN, UNK
     Route: 058
  7. SYNTHROID [Concomitant]
     Dosage: UNK UKN, UNK
  8. VITAMIN B12 [Concomitant]
     Dosage: 1 DF, QD
     Route: 048

REACTIONS (4)
  - Foot fracture [Unknown]
  - Skin ulcer [Recovering/Resolving]
  - Osteomyelitis [Recovering/Resolving]
  - Injection site scar [Unknown]
